FAERS Safety Report 17881851 (Version 2)
Quarter: 2022Q1

REPORT INFORMATION
  Report Type: Report from Study
  Country: US (occurrence: US)
  Receive Date: 20200610
  Receipt Date: 20220307
  Transmission Date: 20220423
  Serious: Yes (Congenital Anomaly, Other)
  Sender: FDA-Public Use
  Company Number: US-UCBSA-2020022843

PATIENT
  Age: 0 Year
  Sex: Male

DRUGS (21)
  1. CERTOLIZUMAB PEGOL [Suspect]
     Active Substance: CERTOLIZUMAB PEGOL
     Indication: Psoriatic arthropathy
     Dosage: 200 MILLIGRAM, 2X/MONTH
     Route: 064
     Dates: start: 20190222, end: 20190618
  2. CERTOLIZUMAB PEGOL [Suspect]
     Active Substance: CERTOLIZUMAB PEGOL
     Dosage: 200 MILLIGRAM, THREE TIMES A MONTH/ EVERY 10 DAYS
     Route: 064
     Dates: start: 20190619, end: 20191116
  3. ACYCLOVIR [Concomitant]
     Active Substance: ACYCLOVIR
     Indication: Oral herpes
     Dosage: UNK
     Route: 064
     Dates: start: 20190718, end: 20190929
  4. DOXYLAMINE [Concomitant]
     Active Substance: DOXYLAMINE
     Indication: Morning sickness
     Dosage: UNK
     Route: 064
     Dates: start: 20190322, end: 20190405
  5. FEVERFEW\TANACETUM PARTHENIUM [Concomitant]
     Active Substance: FEVERFEW\TANACETUM PARTHENIUM
     Indication: Prophylaxis
     Dosage: UNK
     Route: 064
     Dates: start: 20190214, end: 20191015
  6. FIORICET [Concomitant]
     Active Substance: ACETAMINOPHEN\BUTALBITAL\CAFFEINE
     Indication: Migraine
     Dosage: UNK
     Route: 064
     Dates: start: 20190517, end: 20190930
  7. INFLUENZA VIRUS VACCINE [Concomitant]
     Active Substance: INFLUENZA VIRUS VACCINE
     Indication: Influenza immunisation
     Dosage: UNK
     Route: 064
     Dates: start: 20190823, end: 20190823
  8. FOLIC ACID [Concomitant]
     Active Substance: FOLIC ACID
     Indication: Product used for unknown indication
     Dosage: UNK
     Route: 064
     Dates: start: 20190214, end: 20190830
  9. MAGNESIUM [Concomitant]
     Active Substance: MAGNESIUM
     Indication: Prophylaxis
     Dosage: UNK
     Route: 064
     Dates: start: 20190214, end: 20191015
  10. METOCLOPRAMIDE [Concomitant]
     Active Substance: METOCLOPRAMIDE
     Indication: Migraine
     Dosage: 10705201 UNK
     Route: 064
  11. METOCLOPRAMIDE [Concomitant]
     Active Substance: METOCLOPRAMIDE
     Indication: Morning sickness
  12. OMEPRAZOLE [Concomitant]
     Active Substance: OMEPRAZOLE
     Indication: Dyspepsia
     Dosage: UNK
     Route: 064
     Dates: start: 20190607, end: 20190906
  13. OMEPRAZOLE [Concomitant]
     Active Substance: OMEPRAZOLE
     Dosage: UNK
     Route: 064
     Dates: start: 20190909, end: 20191116
  14. MINERALS\VITAMINS [Concomitant]
     Active Substance: MINERALS\VITAMINS
     Indication: Product used for unknown indication
     Dosage: UNK
     Route: 064
     Dates: start: 20180508, end: 20190503
  15. MINERALS\VITAMINS [Concomitant]
     Active Substance: MINERALS\VITAMINS
     Dosage: UNK
     Route: 064
     Dates: start: 2019, end: 20191116
  16. TETANUS TOXOID, REDUCED DIPHTHERIA TOXOID AND ACELLULAR PERTUSSIS VACC [Concomitant]
     Active Substance: TETANUS TOXOID, REDUCED DIPHTHERIA TOXOID AND ACELLULAR PERTUSSIS VACCINE ADSORBED, TDAP
     Indication: Product used for unknown indication
     Dosage: UNK
     Route: 064
     Dates: start: 20190903, end: 20190903
  17. TYLENOL EXTRA STRENGTH [Concomitant]
     Active Substance: ACETAMINOPHEN
     Indication: Migraine
     Dosage: 10042019 UNK
     Route: 064
     Dates: start: 20190410, end: 20190410
  18. VITAMIN B COMPLEX [Concomitant]
     Active Substance: CYANOCOBALAMIN\DEXPANTHENOL\NIACINAMIDE\PYRIDOXINE HYDROCHLORIDE\RIBOFLAVIN 5^-PHOSPHATE SODIUM\THIA
     Indication: Product used for unknown indication
     Dosage: UNK
     Route: 064
     Dates: start: 20190214, end: 20191015
  19. VITAMIN B6 [Concomitant]
     Active Substance: PYRIDOXINE HYDROCHLORIDE
     Indication: Morning sickness
     Dosage: UNK
     Route: 064
     Dates: start: 20190322, end: 20190419
  20. ERGOCALCIFEROL [Concomitant]
     Active Substance: ERGOCALCIFEROL
     Indication: Product used for unknown indication
     Dosage: UNK
     Route: 064
     Dates: start: 20190214, end: 20191116
  21. ZOFRAN [Concomitant]
     Active Substance: ONDANSETRON HYDROCHLORIDE
     Indication: Nausea
     Dosage: UNK
     Route: 064
     Dates: start: 20190510, end: 20190516

REACTIONS (4)
  - Pneumonia respiratory syncytial viral [Recovered/Resolved]
  - Hypospadias [Unknown]
  - Maternal exposure before pregnancy [Unknown]
  - Maternal exposure during pregnancy [Unknown]

NARRATIVE: CASE EVENT DATE: 20190222
